FAERS Safety Report 9549061 (Version 3)
Quarter: 2013Q4

REPORT INFORMATION
  Report Type: Report from Study
  Country: CA (occurrence: CA)
  Receive Date: 20130924
  Receipt Date: 20131021
  Transmission Date: 20140711
  Serious: Yes (Hospitalization, Other)
  Sender: FDA-Public Use
  Company Number: CA-ABBVIE-12P-028-0962655-00

PATIENT
  Age: 59 Year
  Sex: Female
  Weight: 59.02 kg

DRUGS (8)
  1. HUMIRA [Suspect]
     Indication: CROHN^S DISEASE
     Route: 058
     Dates: start: 20080228, end: 201203
  2. HUMIRA [Suspect]
     Dates: end: 20130822
  3. IMURAN [Concomitant]
     Indication: CROHN^S DISEASE
     Route: 048
  4. IMURAN [Concomitant]
     Indication: CROHN^S DISEASE
  5. FOSAVANCE [Concomitant]
     Indication: OSTEOPOROSIS
     Route: 048
     Dates: start: 201308
  6. VITAMIN D [Concomitant]
     Indication: OSTEOPOROSIS
     Route: 048
  7. CALCIUM [Concomitant]
     Indication: OSTEOPOROSIS
     Route: 048
  8. PREDNISONE [Concomitant]
     Indication: CROHN^S DISEASE
     Route: 048

REACTIONS (7)
  - Crohn^s disease [Not Recovered/Not Resolved]
  - Gastrointestinal fistula [Not Recovered/Not Resolved]
  - Crohn^s disease [Unknown]
  - Drug ineffective [Unknown]
  - Pain [Unknown]
  - Fatigue [Unknown]
  - Chills [Not Recovered/Not Resolved]
